FAERS Safety Report 8487840-7 (Version None)
Quarter: 2012Q3

REPORT INFORMATION
  Report Type: 
  Country: None (occurrence: None)
  Receive Date: 20120705
  Receipt Date: 20120627
  Transmission Date: 20120928
  Serious: Yes (Other)
  Sender: FDA-Public Use
  Company Number: US-PFIZER INC-2012155337

PATIENT
  Sex: Female
  Weight: 44 kg

DRUGS (7)
  1. CATAPRES [Concomitant]
     Indication: CARDIAC DISORDER
     Dosage: 200 MG, UNK
  2. CARDURA [Concomitant]
     Dosage: 8 MG, UNK
  3. RESTASIS [Concomitant]
     Indication: DRY EYE
     Dosage: UNK
  4. METOPROLOL [Concomitant]
     Indication: TACHYCARDIA
     Dosage: UNK
  5. TOVIAZ [Suspect]
     Indication: HYPERTONIC BLADDER
     Dosage: 4 MG, 1X/DAY
     Route: 048
     Dates: start: 20120626
  6. DIURIL [Concomitant]
     Indication: HYPERTENSION
     Dosage: 250 MG, 1X/DAY
  7. LOPRESSOR HCT [Concomitant]
     Indication: TACHYCARDIA
     Dosage: UNK

REACTIONS (3)
  - MALAISE [None]
  - BLOOD PRESSURE ABNORMAL [None]
  - URINARY RETENTION [None]
